FAERS Safety Report 4623052-2 (Version None)
Quarter: 2005Q1

REPORT INFORMATION
  Report Type: 
  Country: None (occurrence: None)
  Receive Date: 20050330
  Receipt Date: 20050321
  Transmission Date: 20050727
  Serious: Yes (Hospitalization)
  Sender: FDA-Public Use
  Company Number: DE-BRISTOL-MYERS SQUIBB COMPANY-12904652

PATIENT
  Sex: Female
  Weight: 56 kg

DRUGS (2)
  1. CARBOPLATIN [Suspect]
     Indication: BREAST CANCER
     Dates: start: 20050128
  2. GEMZAR [Suspect]
     Indication: BREAST CANCER
     Route: 042
     Dates: start: 20050128

REACTIONS (1)
  - FLANK PAIN [None]
